FAERS Safety Report 10092060 (Version 2)
Quarter: 2014Q2

REPORT INFORMATION
  Report Type: Spontaneous
  Country: US (occurrence: US)
  Receive Date: 20140421
  Receipt Date: 20140421
  Transmission Date: 20141212
  Serious: No
  Sender: FDA-Public Use
  Company Number: US-GILEAD-2013-0071729

PATIENT
  Age: 62 Year
  Sex: Female

DRUGS (3)
  1. LETAIRIS [Suspect]
     Indication: PRODUCT USED FOR UNKNOWN INDICATION
     Dosage: 10 MG, QD
     Dates: start: 20090226
  2. REVATIO [Concomitant]
  3. FLOLAN [Concomitant]

REACTIONS (5)
  - Cough [Unknown]
  - Memory impairment [Unknown]
  - Device leakage [None]
  - Headache [Recovering/Resolving]
  - Dizziness [Recovering/Resolving]
